FAERS Safety Report 8066529-2 (Version None)
Quarter: 2012Q1

REPORT INFORMATION
  Report Type: 
  Country: None (occurrence: None)
  Receive Date: 20120124
  Receipt Date: 20120110
  Transmission Date: 20120608
  Serious: Yes (Hospitalization, Other)
  Sender: FDA-Public Use
  Company Number: PHHY2012IT002638

PATIENT
  Age: 8 Year
  Sex: Male

DRUGS (9)
  1. CASPOFUNGIN ACETATE [Concomitant]
     Dosage: 1X70 MG/M2
  2. METHOTREXATE [Concomitant]
     Indication: PROPHYLAXIS AGAINST GRAFT VERSUS HOST DISEASE
  3. RITUXIMAB [Concomitant]
     Dosage: 375 MG/M2, UNK
  4. CYCLOPHOSPHAMIDE [Concomitant]
     Indication: STEM CELL TRANSPLANT
     Dosage: 4X50 MG/KG/DAY
  5. THIOTEPA [Concomitant]
     Dosage: 5 MG/KG, BID ON DAY -6
  6. CYCLOSPORINE [Suspect]
     Indication: PROPHYLAXIS AGAINST GRAFT VERSUS HOST DISEASE
  7. CASPOFUNGIN ACETATE [Concomitant]
     Dosage: 1X50 MG/M2/DAY
  8. FLUDARABINE PHOSPHATE [Concomitant]
     Indication: STEM CELL TRANSPLANT
  9. ANTILYMPHOCYTE IMMUNOGLOBULIN (RABBIT) [Concomitant]
     Indication: STEM CELL TRANSPLANT
     Dosage: 4X20 MG/KG/DAY, (FROM DAY - 5 TO DAY - 2

REACTIONS (17)
  - ASPERGILLOMA [None]
  - PLEURITIC PAIN [None]
  - COUGH [None]
  - BONE MARROW FAILURE [None]
  - STAPHYLOCOCCAL SEPSIS [None]
  - PLEURAL EFFUSION [None]
  - HYPOXIA [None]
  - LUNG CONSOLIDATION [None]
  - BLOOD STEM CELL TRANSPLANT FAILURE [None]
  - TACHYPNOEA [None]
  - STENOTROPHOMONAS SEPSIS [None]
  - DENTAL NECROSIS [None]
  - SINUSITIS BACTERIAL [None]
  - BRONCHOPULMONARY ASPERGILLOSIS [None]
  - HAEMOPTYSIS [None]
  - TOOTH ABSCESS [None]
  - PYREXIA [None]
